FAERS Safety Report 7436448-0 (Version None)
Quarter: 2011Q2

REPORT INFORMATION
  Report Type: 
  Country: None (occurrence: None)
  Receive Date: 20110426
  Receipt Date: 20110418
  Transmission Date: 20111010
  Serious: No
  Sender: FDA-Public Use
  Company Number: US-BIOGENIDEC-2011BI014585

PATIENT
  Sex: Male

DRUGS (2)
  1. TYSABRI [Suspect]
     Indication: MULTIPLE SCLEROSIS
     Route: 042
     Dates: start: 20110308
  2. TYSABRI [Suspect]
     Route: 042
     Dates: start: 20080219, end: 20100812

REACTIONS (6)
  - VISUAL IMPAIRMENT [None]
  - ASTHENIA [None]
  - MULTIPLE ALLERGIES [None]
  - PAIN [None]
  - HEADACHE [None]
  - TOOTH DISORDER [None]
